FAERS Safety Report 19733213 (Version 2)
Quarter: 2021Q4

REPORT INFORMATION
  Report Type: Report from Study
  Country: US (occurrence: US)
  Receive Date: 20210823
  Receipt Date: 20211111
  Transmission Date: 20220303
  Serious: No
  Sender: FDA-Public Use
  Company Number: US-SANOFI-00692090

PATIENT
  Age: 92 Year
  Sex: Male

DRUGS (2)
  1. DUPILUMAB [Suspect]
     Active Substance: DUPILUMAB
     Indication: Dermatitis atopic
     Dosage: 600 MG, 1X
     Route: 058
     Dates: start: 20210709, end: 20210709
  2. DUPILUMAB [Suspect]
     Active Substance: DUPILUMAB
     Indication: Eczema
     Dosage: 300 MG, QOW
     Route: 058
     Dates: start: 20210723

REACTIONS (5)
  - Visual impairment [Not Recovered/Not Resolved]
  - Visual impairment [Not Recovered/Not Resolved]
  - Urticaria [Recovered/Resolved]
  - Skin texture abnormal [Not Recovered/Not Resolved]
  - Pruritus [Not Recovered/Not Resolved]
